FAERS Safety Report 9637406 (Version 2)
Quarter: 2013Q4

REPORT INFORMATION
  Report Type: Spontaneous
  Country: FR (occurrence: FR)
  Receive Date: 20131022
  Receipt Date: 20131022
  Transmission Date: 20140711
  Serious: Yes (Hospitalization)
  Sender: FDA-Public Use
  Company Number: FR-JNJFOC-20050102031

PATIENT
  Age: 87 Year
  Sex: Female

DRUGS (19)
  1. GYNO-PERVARYL [Suspect]
     Indication: URINARY TRACT INFECTION
     Route: 067
     Dates: start: 20041201, end: 20041207
  2. PAROXETINE [Interacting]
     Indication: DEPRESSION
     Dosage: 0.5CP PER DAY
     Route: 048
     Dates: start: 20040921, end: 20041208
  3. BACTRIM FORTE [Interacting]
     Indication: URINARY TRACT INFECTION
     Dosage: 2CP PER DAY
     Route: 048
     Dates: start: 20041201, end: 20041207
  4. COUMADINE [Interacting]
     Indication: VENOUS THROMBOSIS
     Route: 048
     Dates: start: 20031101, end: 20041208
  5. KALEORID [Concomitant]
     Dosage: 1 TABLET PER DAY
  6. BURINEX [Concomitant]
     Dosage: 1 TABLET PER DAY
  7. DITROPAN [Concomitant]
     Dosage: 2 TABLETS PER DAY
     Route: 065
  8. TEMESTA [Concomitant]
     Dosage: 1 TABLET PER DAY
  9. FORLAX [Concomitant]
     Dosage: 2 TABLETS PER DAY
  10. LAMALINE [Concomitant]
     Dosage: 1 TABLET PER DAY
  11. SPIROCTAN [Concomitant]
     Dosage: 1 TABLET PER DAY
  12. DEBRIDAT [Concomitant]
     Dosage: 2 TABLETS PER DAY
  13. FUNGIZONE [Concomitant]
     Indication: URINARY TRACT INFECTION
     Dosage: 2 TABLETS PER DAY
     Route: 065
  14. ACETAMINOPHEN [Concomitant]
     Route: 065
  15. LORAZEPAM [Concomitant]
     Route: 065
  16. POLYETHYLENE GLYCOL [Concomitant]
     Route: 065
  17. POTASSIUM CHLORIDE [Concomitant]
     Route: 065
  18. TRIMEBUTINE MALEATE [Concomitant]
     Route: 065
  19. BUMETANIDE [Concomitant]
     Route: 065

REACTIONS (5)
  - Rectal haemorrhage [Recovered/Resolved]
  - Drug interaction [Recovered/Resolved]
  - International normalised ratio increased [Recovered/Resolved]
  - Abdominal pain [Unknown]
  - Gastrointestinal disorder [Unknown]
